FAERS Safety Report 26026987 (Version 1)
Quarter: 2025Q4

REPORT INFORMATION
  Report Type: Spontaneous
  Country: US (occurrence: None)
  Receive Date: 20251110
  Receipt Date: 20251110
  Transmission Date: 20260117
  Serious: No
  Sender: FDA-CTU
  Company Number: None

PATIENT
  Age: 39 Year
  Sex: Male
  Weight: 60.33 kg

DRUGS (1)
  1. LENVIMA [Suspect]
     Active Substance: LENVATINIB
     Indication: Hepatic cancer
     Dosage: 12  MG DAILY ORAL ?
     Route: 048
     Dates: start: 20251106

REACTIONS (2)
  - Dry mouth [None]
  - Blood pressure increased [None]

NARRATIVE: CASE EVENT DATE: 20251110
